FAERS Safety Report 8366431-2 (Version None)
Quarter: 2012Q2

REPORT INFORMATION
  Report Type: 
  Country: None (occurrence: None)
  Receive Date: 20120517
  Receipt Date: 20120511
  Transmission Date: 20120825
  Serious: Yes (Other)
  Sender: FDA-Public Use
  Company Number: US-ASTRAZENECA-2011SE32253

PATIENT
  Age: 63 Year
  Sex: Female
  Weight: 65.8 kg

DRUGS (17)
  1. ASPIRIN [Concomitant]
     Indication: CARDIAC DISORDER
  2. SYNTHROID [Concomitant]
     Indication: THYROID DISORDER
  3. DEMEROL [Concomitant]
     Dates: start: 20070821
  4. NEXIUM [Suspect]
     Route: 048
     Dates: start: 20011201, end: 20030701
  5. LIPITOR [Concomitant]
     Indication: BLOOD CHOLESTEROL
  6. PROTONIX [Concomitant]
     Indication: GASTROOESOPHAGEAL REFLUX DISEASE
     Dates: start: 20060801, end: 20070701
  7. CLIMARA [Concomitant]
     Dates: start: 20060101
  8. VERSED [Concomitant]
     Route: 040
     Dates: start: 20070821
  9. TOPROL-XL [Concomitant]
     Indication: BLOOD PRESSURE
  10. SYNTHROID [Concomitant]
     Indication: HYPERPARATHYROIDISM
  11. NEXIUM [Suspect]
     Indication: GASTROOESOPHAGEAL REFLUX DISEASE
     Route: 048
     Dates: start: 20010101, end: 20030101
  12. CRESTOR [Concomitant]
     Indication: BLOOD CHOLESTEROL
  13. CALCIUM [Concomitant]
     Indication: CALCIUM DEFICIENCY
  14. PREVACID [Concomitant]
     Indication: GASTROOESOPHAGEAL REFLUX DISEASE
     Dates: start: 20030701, end: 20060801
  15. AMILORIDE HCL AND HYDROCHLOROTHIAZIDE [Concomitant]
     Indication: CALCIUM METABOLISM DISORDER
     Dosage: 5MG/50MG
  16. ZEGERID [Concomitant]
     Indication: GASTROOESOPHAGEAL REFLUX DISEASE
     Dates: start: 20070801
  17. ATROPINE [Concomitant]
     Dates: start: 20070821

REACTIONS (5)
  - BONE DENSITY DECREASED [None]
  - SPINAL FRACTURE [None]
  - SPINAL COMPRESSION FRACTURE [None]
  - OSTEOPOROSIS [None]
  - CARPAL TUNNEL SYNDROME [None]
